FAERS Safety Report 25003908 (Version 1)
Quarter: 2025Q1

REPORT INFORMATION
  Report Type: Spontaneous
  Country: US (occurrence: US)
  Receive Date: 20250224
  Receipt Date: 20250224
  Transmission Date: 20250408
  Serious: Yes (Other)
  Sender: SANDOZ
  Company Number: US-SANDOZ-SDZ2025US011502

PATIENT
  Sex: Female

DRUGS (2)
  1. AMITRIPTYLINE [Interacting]
     Active Substance: AMITRIPTYLINE
     Indication: Migraine
     Route: 065
  2. ORTHO TRI CYCLEN [Interacting]
     Active Substance: ETHINYL ESTRADIOL\NORGESTIMATE
     Indication: Product used for unknown indication
     Route: 065

REACTIONS (4)
  - Electrocardiogram QT prolonged [Unknown]
  - Syncope [Unknown]
  - Cardiac murmur [Unknown]
  - Drug interaction [Unknown]
